FAERS Safety Report 5054617-4 (Version None)
Quarter: 2006Q3

REPORT INFORMATION
  Report Type: 
  Country: None (occurrence: None)
  Receive Date: 20060719
  Receipt Date: 20060707
  Transmission Date: 20061208
  Serious: Yes (Hospitalization)
  Sender: FDA-Public Use
  Company Number: JP-JNJFOC-20060602559

PATIENT
  Sex: Female
  Weight: 53 kg

DRUGS (11)
  1. REMICADE [Suspect]
     Route: 048
  2. REMICADE [Suspect]
     Dosage: 2 INFUSIONS, DATES UNSPECIFIED
     Route: 048
  3. REMICADE [Suspect]
     Indication: RHEUMATOID ARTHRITIS
     Route: 048
  4. RHEUMATREX [Suspect]
     Route: 048
  5. RHEUMATREX [Suspect]
     Indication: RHEUMATOID ARTHRITIS
     Route: 048
  6. MUCOSTA [Concomitant]
     Indication: GASTRITIS
     Route: 048
  7. ISCOTIN [Concomitant]
     Indication: PROPHYLAXIS
     Route: 048
  8. BENET [Concomitant]
     Indication: OSTEOPOROSIS
     Route: 048
  9. FOLIAMIN [Concomitant]
     Indication: RHEUMATOID ARTHRITIS
     Route: 048
  10. PREDONINE [Concomitant]
     Indication: RHEUMATOID ARTHRITIS
     Route: 048
  11. MIYA BM [Concomitant]
     Indication: ENTEROCOLITIS
     Route: 048

REACTIONS (1)
  - VASCULITIC RASH [None]
